FAERS Safety Report 8386733-3 (Version None)
Quarter: 2012Q2

REPORT INFORMATION
  Report Type: 
  Country: None (occurrence: None)
  Receive Date: 20120525
  Receipt Date: 20120518
  Transmission Date: 20120825
  Serious: Yes (Hospitalization)
  Sender: FDA-Public Use
  Company Number: US-BAYER-2012-014294

PATIENT
  Age: 34 Year
  Sex: Female
  Weight: 54.422 kg

DRUGS (11)
  1. PROCHLORPERAZINE [Concomitant]
     Dosage: 10 MG, UNK
     Route: 048
     Dates: start: 20100122
  2. HYDROCODONE BITARTRATE AND ACETAMINOPHEN [Concomitant]
     Dosage: 5/500MG
     Route: 048
     Dates: start: 20100301
  3. PERCOCET [Concomitant]
  4. PROPRANOLOL [Concomitant]
     Dosage: 10 MG, UNK
     Route: 048
     Dates: start: 20100122
  5. WELLBUTRIN [Concomitant]
     Dosage: 150 MG, BID
  6. BUPROPION HYDROCHLORIDE [Concomitant]
     Dosage: 150 MG, UNK
     Route: 048
     Dates: start: 20100309
  7. SUMATRIPTAN [Concomitant]
     Dosage: 100 MG, UNK
     Route: 048
     Dates: start: 20100205
  8. CEFADROXIL [Concomitant]
     Dosage: 500 MG, UNK
     Route: 048
     Dates: start: 20100226
  9. YAZ [Suspect]
     Dosage: UNK
  10. DIAZEPAM [Concomitant]
     Dosage: 10 MG, UNK
     Route: 048
     Dates: start: 20100311
  11. MAXALT [Concomitant]
     Dosage: 10 MG, UNK
     Route: 048
     Dates: start: 20100122

REACTIONS (6)
  - DEEP VEIN THROMBOSIS [None]
  - PAIN [None]
  - ANXIETY [None]
  - PAIN IN EXTREMITY [None]
  - ANHEDONIA [None]
  - OEDEMA PERIPHERAL [None]
